FAERS Safety Report 6891626-4 (Version None)
Quarter: 2010Q3

REPORT INFORMATION
  Report Type: 
  Country: None (occurrence: None)
  Receive Date: 20100731
  Receipt Date: 20071106
  Transmission Date: 20110219
  Serious: No
  Sender: FDA-Public Use
  Company Number: US-PFIZER INC-2007079689

PATIENT

DRUGS (1)
  1. CAVERJECT [Suspect]
     Dates: start: 20070914

REACTIONS (2)
  - DEVICE FAILURE [None]
  - INCORRECT DOSE ADMINISTERED [None]
